FAERS Safety Report 18422566 (Version 3)
Quarter: 2020Q4

REPORT INFORMATION
  Report Type: Report from Study
  Country: AR (occurrence: AR)
  Receive Date: 20201023
  Receipt Date: 20201207
  Transmission Date: 20210114
  Serious: Yes (Hospitalization, Other)
  Sender: FDA-Public Use
  Company Number: NVSC2020AR281741

PATIENT
  Age: 78 Year
  Sex: Female

DRUGS (3)
  1. REVOLADE [Suspect]
     Active Substance: ELTROMBOPAG
     Indication: APLASTIC ANAEMIA
     Dosage: 125 MG, QD (CAPSULE)
     Route: 048
     Dates: start: 20200330
  2. REVOLADE [Suspect]
     Active Substance: ELTROMBOPAG
     Dosage: 150 MG, QD
     Route: 048
  3. REVOLADE [Suspect]
     Active Substance: ELTROMBOPAG
     Dosage: UNK
     Route: 065
     Dates: start: 20200330

REACTIONS (6)
  - Mass [Unknown]
  - Skin cancer [Unknown]
  - Fatigue [Unknown]
  - Contusion [Unknown]
  - Illness [Unknown]
  - Skin infection [Unknown]

NARRATIVE: CASE EVENT DATE: 202008
